FAERS Safety Report 9104308 (Version 1)
Quarter: 2013Q1

REPORT INFORMATION
  Report Type: Spontaneous
  Country: US (occurrence: US)
  Receive Date: 20130220
  Receipt Date: 20130220
  Transmission Date: 20140127
  Serious: Yes (Other)
  Sender: FDA-Public Use
  Company Number: US-ASTRAZENECA-2012SE82131

PATIENT
  Age: 78 Year
  Sex: Female

DRUGS (18)
  1. AROMASIN [Suspect]
     Route: 065
  2. TAMOXIFEN [Suspect]
     Route: 048
  3. ARIMIDEX [Suspect]
     Route: 048
  4. METFORMIN [Suspect]
     Route: 065
  5. FLU VACCINE [Suspect]
     Route: 065
  6. ANACIN [Concomitant]
  7. BENICAR [Concomitant]
  8. CIPRO [Concomitant]
  9. HYDROCORTISONE METHYLPARABEN [Concomitant]
  10. LETROZOLE [Concomitant]
  11. LIPITOR [Concomitant]
  12. OXYCODONE [Concomitant]
  13. PENICILLIN G [Concomitant]
  14. PRAVACHOL [Concomitant]
  15. QUINAPRIL [Concomitant]
  16. ZOCOR [Concomitant]
  17. CLINDAMYCIN [Concomitant]
  18. BACTRIN [Concomitant]

REACTIONS (4)
  - Anaphylactic reaction [Unknown]
  - Angioedema [Unknown]
  - Rash [Unknown]
  - Drug hypersensitivity [Unknown]
